FAERS Safety Report 5108845-X (Version None)
Quarter: 2006Q3

REPORT INFORMATION
  Report Type: 
  Country: None (occurrence: None)
  Receive Date: 20060915
  Receipt Date: 20060915
  Transmission Date: 20061208
  Serious: Yes (Hospitalization)
  Sender: FDA-Public Use
  Company Number: None

PATIENT
  Sex: Male
  Weight: 70.3 kg

DRUGS (5)
  1. VELCADE [Suspect]
     Indication: GLIOBLASTOMA MULTIFORME
     Dosage: 2.43 MG  TWICE A WEEK   IV
     Route: 042
     Dates: start: 20060822, end: 20060922
  2. TEMODAR [Suspect]
     Dosage: 140 MG   DAILY   PO
     Route: 048
     Dates: start: 20060722, end: 20060829
  3. DECADRON [Concomitant]
  4. KEPPRA [Concomitant]
  5. HEPARIN [Concomitant]

REACTIONS (1)
  - PULMONARY EMBOLISM [None]
